FAERS Safety Report 15376075 (Version 2)
Quarter: 2020Q3

REPORT INFORMATION
  Report Type: Spontaneous
  Country: US (occurrence: US)
  Receive Date: 20180912
  Receipt Date: 20200807
  Transmission Date: 20201102
  Serious: Yes (Hospitalization, Other)
  Sender: FDA-Public Use
  Company Number: US-ELI_LILLY_AND_COMPANY-US201809000526

PATIENT
  Age: 78 Year
  Sex: Male

DRUGS (4)
  1. HUMALOG KWIKPEN [Suspect]
     Active Substance: INSULIN LISPRO
     Dosage: UNK UNK, PRN
     Route: 058
  2. HUMALOG KWIKPEN [Suspect]
     Active Substance: INSULIN LISPRO
     Dosage: 10 U, EACH EVENING
     Route: 058
  3. HUMALOG KWIKPEN [Suspect]
     Active Substance: INSULIN LISPRO
     Dosage: UNK UNK, TID (UPTO 15 UNITS)
     Route: 058
  4. HUMALOG KWIKPEN [Suspect]
     Active Substance: INSULIN LISPRO
     Indication: DIABETES MELLITUS
     Dosage: 6 U, BID
     Route: 058

REACTIONS (3)
  - Prostate cancer [Recovering/Resolving]
  - Fall [Unknown]
  - Dementia Alzheimer^s type [Not Recovered/Not Resolved]

NARRATIVE: CASE EVENT DATE: 2010
